FAERS Safety Report 26078306 (Version 1)
Quarter: 2025Q4

REPORT INFORMATION
  Report Type: Spontaneous
  Country: US (occurrence: US)
  Receive Date: 20251122
  Receipt Date: 20251122
  Transmission Date: 20260117
  Serious: No
  Sender: SANOFI AVENTIS
  Company Number: US-SA-2025SA347319

PATIENT
  Age: 45 Year
  Sex: Male

DRUGS (5)
  1. FABRAZYME [Suspect]
     Active Substance: AGALSIDASE BETA
     Indication: Fabry^s disease
     Dosage: 90 MG, QOW
     Route: 042
     Dates: start: 202501
  2. EPINEPHRINE [Concomitant]
     Active Substance: EPINEPHRINE
  3. STERILE WATER [Concomitant]
     Active Substance: WATER
  4. SODIUM CHLORIDE [Concomitant]
     Active Substance: SODIUM CHLORIDE
  5. SODIUM CHLORIDE [Concomitant]
     Active Substance: SODIUM CHLORIDE

REACTIONS (1)
  - Skin infection [Unknown]

NARRATIVE: CASE EVENT DATE: 20250101
